FAERS Safety Report 13024390 (Version 6)
Quarter: 2017Q3

REPORT INFORMATION
  Report Type: Report from Study
  Country: US (occurrence: US)
  Receive Date: 20161213
  Receipt Date: 20170728
  Transmission Date: 20171127
  Serious: Yes (Hospitalization)
  Sender: FDA-Public Use
  Company Number: US-ACTELION-A-NJ2016-146785

PATIENT
  Age: 69 Year
  Sex: Female
  Weight: 124.72 kg

DRUGS (2)
  1. OPSUMIT [Suspect]
     Active Substance: MACITENTAN
     Indication: PULMONARY HYPERTENSION
     Dosage: 10 MG, QD
     Route: 048
     Dates: start: 20160706, end: 20161031
  2. ELIQUIS [Concomitant]
     Active Substance: APIXABAN
     Dosage: UNK
     Dates: start: 20161030

REACTIONS (9)
  - Haemoglobin decreased [Recovered/Resolved]
  - Iron deficiency [Unknown]
  - Anaemia [Recovered/Resolved]
  - Large intestine polyp [Unknown]
  - Haematocrit decreased [Recovered/Resolved]
  - Asthenia [Unknown]
  - Gastrointestinal haemorrhage [Not Recovered/Not Resolved]
  - Benign gastrointestinal neoplasm [Unknown]
  - Transfusion [Unknown]

NARRATIVE: CASE EVENT DATE: 20161030
